FAERS Safety Report 14204564 (Version 1)
Quarter: 2017Q4

REPORT INFORMATION
  Report Type: Spontaneous
  Country: US (occurrence: None)
  Receive Date: 20171117
  Receipt Date: 20171117
  Transmission Date: 20180321
  Serious: Yes (Hospitalization, Other)
  Sender: FDA-Public Use
  Company Number: None

PATIENT
  Age: 93 Year
  Sex: Female

DRUGS (1)
  1. RIFAMPIN. [Suspect]
     Active Substance: RIFAMPIN
     Dates: start: 20141231, end: 20150511

REACTIONS (7)
  - Escherichia urinary tract infection [None]
  - Drug-induced liver injury [None]
  - Pleuritic pain [None]
  - Failure to thrive [None]
  - Hepatitis B surface antibody positive [None]
  - Pain [None]
  - Hepatitis B core antibody positive [None]

NARRATIVE: CASE EVENT DATE: 20150511
